FAERS Safety Report 4783471-0 (Version None)
Quarter: 2005Q3

REPORT INFORMATION
  Report Type: 
  Country: None (occurrence: None)
  Receive Date: 20050928
  Receipt Date: 20050928
  Transmission Date: 20060218
  Serious: Yes (Hospitalization)
  Sender: FDA-Public Use
  Company Number: None

PATIENT
  Age: 92 Year
  Sex: Male
  Weight: 63.2 kg

DRUGS (5)
  1. ATENOLOL [Suspect]
     Dosage: 12.5MG QD BY MOUTH
     Route: 048
     Dates: start: 20050211, end: 20050220
  2. LISINOPRIL [Suspect]
     Dosage: 10MG QD, BY MOUTH (PO)
     Route: 048
     Dates: start: 20050211, end: 20050220
  3. MECLIZINE HCL [Concomitant]
  4. CITALOPRAM HYDROBROMIDE [Concomitant]
  5. ASPIRIN [Concomitant]

REACTIONS (3)
  - DIZZINESS [None]
  - ORTHOSTATIC HYPOTENSION [None]
  - SYNCOPE [None]
